FAERS Safety Report 8720863 (Version 2)
Quarter: 2014Q3

REPORT INFORMATION
  Report Type: Spontaneous
  Country: US (occurrence: US)
  Receive Date: 20120813
  Receipt Date: 20140820
  Transmission Date: 20150326
  Serious: Yes (Other)
  Sender: FDA-Public Use
  Company Number: US-GLAXOSMITHKLINE-A0875685A

PATIENT
  Sex: Female

DRUGS (1)
  1. AVANDIA [Suspect]
     Active Substance: ROSIGLITAZONE MALEATE
     Indication: TYPE 2 DIABETES MELLITUS
     Route: 048
     Dates: start: 20010401, end: 20070401

REACTIONS (4)
  - Cardiac disorder [Unknown]
  - Lacunar infarction [Not Recovered/Not Resolved]
  - Cerebrovascular accident [Unknown]
  - Carotid artery stenosis [Unknown]
